FAERS Safety Report 8124375-5 (Version None)
Quarter: 2012Q1

REPORT INFORMATION
  Report Type: 
  Country: None (occurrence: None)
  Receive Date: 20120209
  Receipt Date: 20120206
  Transmission Date: 20120608
  Serious: Yes (Hospitalization)
  Sender: FDA-Public Use
  Company Number: US-BAYER-2012-011527

PATIENT
  Age: 68 Year
  Sex: Female

DRUGS (2)
  1. CAPECITABINE [Suspect]
     Indication: OVARIAN CANCER METASTATIC
     Dosage: 750 MG/M2, BID FIRST CYCLE
  2. SORAFENIB (RAF KINASE INHIBITOR) [Suspect]
     Indication: OVARIAN CANCER METASTATIC
     Dosage: 400 MG, BID FIRST CYCLE

REACTIONS (5)
  - VOMITING [None]
  - NAUSEA [None]
  - SEPSIS [None]
  - DIARRHOEA [None]
  - DRUG INTERACTION [None]
